FAERS Safety Report 4620127-9 (Version None)
Quarter: 2005Q1

REPORT INFORMATION
  Report Type: 
  Country: None (occurrence: None)
  Receive Date: 20050324
  Receipt Date: 20050314
  Transmission Date: 20050727
  Serious: Yes (Hospitalization)
  Sender: FDA-Public Use
  Company Number: TNZFR200500002

PATIENT
  Age: 47 Year
  Sex: Female
  Weight: 50 kg

DRUGS (3)
  1. INNOHEP
  (TINZAPARIN SODIUM ) [Suspect]
     Indication: THROMBOSIS PROPHYLAXIS
     Dosage: 3500 IU (3500 IU, ONCE DAILY), SUBCUTANEOUS
     Route: 058
     Dates: start: 20041214, end: 20050102
  2. MERCILON           (DESOGESTREL W/ESTRADIOL) [Concomitant]
  3. DI-ANTALVIC          (DI-GESIC) [Concomitant]

REACTIONS (8)
  - BRAIN OEDEMA [None]
  - BRAIN SCAN ABNORMAL [None]
  - HEADACHE [None]
  - HYPOAESTHESIA [None]
  - NERVOUS SYSTEM DISORDER [None]
  - SPEECH DISORDER [None]
  - VERTIGO [None]
  - VISUAL DISTURBANCE [None]
